FAERS Safety Report 8299135-5 (Version None)
Quarter: 2012Q2

REPORT INFORMATION
  Report Type: 
  Country: None (occurrence: None)
  Receive Date: 20120419
  Receipt Date: 20120409
  Transmission Date: 20120825
  Serious: Yes (Other)
  Sender: FDA-Public Use
  Company Number: CA-ROCHE-1049350

PATIENT
  Sex: Male
  Weight: 101.7 kg

DRUGS (4)
  1. VALPROIC ACID [Concomitant]
  2. AVASTIN [Suspect]
     Indication: GLIOBLASTOMA MULTIFORME
     Route: 042
     Dates: start: 20120207
  3. VITAMINS + MINERALS [Concomitant]
  4. METHYLPREDNISOLONE [Concomitant]
     Route: 042
     Dates: start: 20120323, end: 20120323

REACTIONS (11)
  - ASTHENIA [None]
  - CONVULSION [None]
  - GAIT DISTURBANCE [None]
  - HEMIPARESIS [None]
  - VIITH NERVE PARALYSIS [None]
  - DYSPNOEA [None]
  - URINARY INCONTINENCE [None]
  - FAECAL INCONTINENCE [None]
  - BLADDER DISORDER [None]
  - MICTURITION URGENCY [None]
  - CONFUSIONAL STATE [None]
